FAERS Safety Report 9912750 (Version 1)
Quarter: 2014Q1

REPORT INFORMATION
  Report Type: Spontaneous
  Country: US (occurrence: US)
  Receive Date: 20140220
  Receipt Date: 20140220
  Transmission Date: 20141002
  Serious: Yes (Other)
  Sender: FDA-Public Use
  Company Number: US-PFIZER INC-2014047651

PATIENT
  Age: 56 Year
  Sex: Female
  Weight: 109 kg

DRUGS (10)
  1. XELJANZ [Suspect]
     Indication: RHEUMATOID ARTHRITIS
     Dosage: 5 MG, 2X/DAY
     Route: 048
     Dates: start: 201312, end: 2014
  2. ACIPHEX [Concomitant]
     Dosage: UNK
  3. TRIAMTERENE [Concomitant]
     Dosage: UNK
  4. FOLIC ACID [Concomitant]
     Dosage: UNK
  5. ISOSORBIDE [Concomitant]
     Dosage: UNK
  6. ETODOLAC [Concomitant]
     Dosage: UNK
  7. MAGNESIUM [Concomitant]
     Dosage: UNK
  8. VITAMIN D [Concomitant]
     Dosage: UNK
  9. LEVOTHYROXINE [Concomitant]
     Dosage: UNK
  10. VICODIN [Concomitant]
     Dosage: UNK

REACTIONS (5)
  - Renal impairment [Unknown]
  - Diarrhoea [Unknown]
  - Abdominal pain [Unknown]
  - Nausea [Unknown]
  - Mycobacterium tuberculosis complex test positive [Unknown]
